FAERS Safety Report 8973379 (Version 1)
Quarter: 2012Q4

REPORT INFORMATION
  Report Type: 
  Country: AU (occurrence: AU)
  Receive Date: 20121218
  Receipt Date: 20121218
  Transmission Date: 20130627
  Serious: Yes (Hospitalization, Other)
  Sender: FDA-Public Use
  Company Number: AU-MYLANLABS-2012S1024993

PATIENT
  Age: 72 Year
  Sex: Male

DRUGS (12)
  1. BISOPROLOL [Suspect]
     Indication: PRODUCT USED FOR UNKNOWN INDICATION
     Route: 048
  2. ATROPINE [Concomitant]
     Dosage: Dose unit:200 MICROGRAMS
     Dates: start: 20110813
  3. ASPIRIN [Concomitant]
  4. SAXAGLIPTIN [Concomitant]
     Indication: INSULIN-REQUIRING TYPE 2 DIABETES MELLITUS
  5. PLACEBO [Concomitant]
  6. HMG COA REDUCTASE INHIBITORS [Concomitant]
  7. DIURETICS [Concomitant]
  8. ADENOSINE DIPHOSPHATE RECEPTOR ANTAGONIST [Concomitant]
  9. BETA BLOCKING AGENTS [Concomitant]
  10. ACE INHIBITORS [Concomitant]
  11. WARFARIN [Concomitant]
     Dates: start: 20110812
  12. ENOXAPARIN SODIUM [Concomitant]
     Dates: start: 20110812, end: 20110814

REACTIONS (4)
  - Bradycardia [Recovered/Resolved]
  - Hypoaesthesia [Unknown]
  - Transient ischaemic attack [Unknown]
  - Atrial fibrillation [Unknown]
